FAERS Safety Report 5014194-0 (Version None)
Quarter: 2006Q2

REPORT INFORMATION
  Report Type: 
  Country: None (occurrence: None)
  Receive Date: 20060414
  Receipt Date: 20051215
  Transmission Date: 20061013
  Serious: No
  Sender: FDA-Public Use
  Company Number: 2005SP004459

PATIENT
  Age: 51 Year
  Sex: Female

DRUGS (11)
  1. LUNESTA [Suspect]
     Indication: INSOMNIA
     Dosage: SEE IMAGE
     Route: 048
     Dates: start: 20051206, end: 20051201
  2. LUNESTA [Suspect]
     Indication: INSOMNIA
     Dosage: SEE IMAGE
     Route: 048
     Dates: start: 20051118, end: 20051206
  3. LUNESTA [Suspect]
     Indication: INSOMNIA
     Dosage: SEE IMAGE
     Route: 048
     Dates: start: 20051201
  4. TOPAMAX [Concomitant]
  5. FLEXERIL [Concomitant]
  6. MICARDIS [Concomitant]
  7. MOBIC [Concomitant]
  8. PREMARIN [Concomitant]
  9. DITROPAN XL [Concomitant]
  10. NEXIUM [Concomitant]
  11. DESYREL [Concomitant]

REACTIONS (1)
  - DRUG EFFECT DECREASED [None]
